FAERS Safety Report 10463757 (Version 1)
Quarter: 2014Q3

REPORT INFORMATION
  Report Type: Spontaneous
  Country: US (occurrence: None)
  Receive Date: 20140918
  Receipt Date: 20140918
  Transmission Date: 20150326
  Serious: No
  Sender: FDA-Public Use
  Company Number: None

PATIENT
  Age: 11 Year
  Sex: Male

DRUGS (1)
  1. ENBREL [Suspect]
     Active Substance: ETANERCEPT
     Indication: JUVENILE IDIOPATHIC ARTHRITIS
     Dosage: 50MG  ONCE A WEEK SUBCUTANEOUSLY
     Route: 058
     Dates: start: 20140624, end: 20140916

REACTIONS (3)
  - Acne cystic [None]
  - Erythema multiforme [None]
  - Rash [None]

NARRATIVE: CASE EVENT DATE: 20140916
